FAERS Safety Report 4450252-7 (Version None)
Quarter: 2004Q3

REPORT INFORMATION
  Report Type: 
  Country: None (occurrence: None)
  Receive Date: 20040914
  Receipt Date: 20040902
  Transmission Date: 20050211
  Serious: Yes (Other)
  Sender: FDA-Public Use
  Company Number: 2004231685BR

PATIENT
  Age: 65 Year
  Sex: Female

DRUGS (2)
  1. AROMASIN [Suspect]
     Indication: BREAST CANCER
     Dosage: 25 MG, QD, ORAL
     Route: 048
     Dates: start: 20040428
  2. DIAMICRON (GLICLAZIDE) [Concomitant]

REACTIONS (5)
  - IMPAIRED HEALING [None]
  - INCISION SITE COMPLICATION [None]
  - SURGICAL PROCEDURE REPEATED [None]
  - THERAPY NON-RESPONDER [None]
  - WOUND SECRETION [None]
